FAERS Safety Report 18886511 (Version 3)
Quarter: 2021Q2

REPORT INFORMATION
  Report Type: Spontaneous
  Country: DE (occurrence: DE)
  Receive Date: 20210212
  Receipt Date: 20210423
  Transmission Date: 20210717
  Serious: Yes (Hospitalization, Other)
  Sender: FDA-Public Use
  Company Number: DE-JNJFOC-20210221625

PATIENT
  Sex: Male

DRUGS (10)
  1. STELARA [Suspect]
     Active Substance: USTEKINUMAB
     Indication: PRODUCT USED FOR UNKNOWN INDICATION
     Route: 058
  2. EZETIMIBE. [Concomitant]
     Active Substance: EZETIMIBE
  3. CARBIMAZOLE [Concomitant]
     Active Substance: CARBIMAZOLE
  4. METHOTREXATE. [Concomitant]
     Active Substance: METHOTREXATE
  5. FOLIC ACID. [Concomitant]
     Active Substance: FOLIC ACID
  6. VITAMIN B NOS [Concomitant]
     Active Substance: VITAMIN B
  7. CLOPREDNOL [Concomitant]
     Active Substance: CLOPREDNOL
  8. MOXONIDINE [Concomitant]
     Active Substance: MOXONIDINE
  9. ATORVASTATIN [Concomitant]
     Active Substance: ATORVASTATIN
  10. ASA [Concomitant]
     Active Substance: ASPIRIN

REACTIONS (4)
  - Hospitalisation [Unknown]
  - Crossmatch [Unknown]
  - Antibody test positive [Recovered/Resolved]
  - Surgery [Unknown]

NARRATIVE: CASE EVENT DATE: 20210207
